FAERS Safety Report 7410765-2 (Version None)
Quarter: 2011Q2

REPORT INFORMATION
  Report Type: 
  Country: None (occurrence: None)
  Receive Date: 20110413
  Receipt Date: 20110404
  Transmission Date: 20111010
  Serious: Yes (Other)
  Sender: FDA-Public Use
  Company Number: US-AMGEN-USASP2011017976

PATIENT
  Age: 79 Year
  Sex: Male

DRUGS (7)
  1. CALCIUM WITH VITAMIN D             /00944201/ [Concomitant]
     Dosage: UNK
  2. PROLIA [Suspect]
     Indication: OSTEOPOROSIS
     Dosage: 60 MG, Q6MO
     Dates: start: 20101201
  3. VITAMIN D [Concomitant]
  4. GLUCOSAMINE [Concomitant]
  5. COUMADIN [Concomitant]
     Dosage: 5 MG, UNK
  6. COREG [Concomitant]
  7. COUMADIN [Concomitant]

REACTIONS (8)
  - RASH MACULO-PAPULAR [None]
  - RASH ERYTHEMATOUS [None]
  - MUSCLE SPASMS [None]
  - EXFOLIATIVE RASH [None]
  - SWELLING [None]
  - SKIN DISCOLOURATION [None]
  - HELICOBACTER INFECTION [None]
  - POOR QUALITY SLEEP [None]
